FAERS Safety Report 6774213-8 (Version None)
Quarter: 2010Q2

REPORT INFORMATION
  Report Type: 
  Country: None (occurrence: None)
  Receive Date: 20100617
  Receipt Date: 20100608
  Transmission Date: 20101027
  Serious: Yes (Other)
  Sender: FDA-Public Use
  Company Number: AT-BAYER-201028249GPV

PATIENT
  Age: 55 Year
  Sex: Female

DRUGS (13)
  1. CAMPATH [Suspect]
     Indication: RENAL TRANSPLANT
  2. PREDNISOLONE [Suspect]
     Indication: RENAL TRANSPLANT
  3. PREDNISOLONE [Suspect]
  4. PREDNISOLONE [Suspect]
  5. PREDNISOLONE [Suspect]
  6. TACROLIMUS [Suspect]
     Indication: RENAL TRANSPLANT
  7. TACROLIMUS [Suspect]
  8. TACROLIMUS [Suspect]
  9. SIROLIMUS [Suspect]
     Indication: URINARY TRACT INFLAMMATION
  10. SIROLIMUS [Suspect]
  11. PANTOPRAZOLE [Suspect]
     Indication: DRUG USE FOR UNKNOWN INDICATION
  12. FUROSEMIDE [Concomitant]
  13. METOPROLOL [Concomitant]

REACTIONS (2)
  - SCLEROSING ENCAPSULATING PERITONITIS [None]
  - TUBULOINTERSTITIAL NEPHRITIS [None]
